FAERS Safety Report 5265440-X (Version None)
Quarter: 2007Q1

REPORT INFORMATION
  Report Type: 
  Country: None (occurrence: None)
  Receive Date: 20070314
  Receipt Date: 20070305
  Transmission Date: 20070707
  Serious: Yes (Hospitalization, Other)
  Sender: FDA-Public Use
  Company Number: RO-ABBOTT-06P-135-0343298-00

PATIENT
  Sex: Male

DRUGS (9)
  1. NORVIR [Suspect]
     Indication: HIV INFECTION CDC CATEGORY C3
     Route: 048
     Dates: start: 20060702, end: 20060712
  2. NORVIR [Suspect]
     Route: 048
     Dates: start: 20060723, end: 20060728
  3. APTIVUS [Suspect]
     Indication: HIV INFECTION CDC CATEGORY C3
     Route: 048
     Dates: start: 20060702, end: 20060712
  4. APTIVUS [Suspect]
     Route: 048
     Dates: start: 20060723, end: 20060728
  5. EFAVIRENZ [Concomitant]
     Indication: HIV INFECTION CDC CATEGORY C3
  6. EFAVIRENZ [Concomitant]
  7. FUZEON [Concomitant]
     Indication: HIV INFECTION CDC CATEGORY C3
  8. STAVUDINE [Concomitant]
     Indication: HIV INFECTION
  9. VIREAD [Concomitant]
     Indication: HIV INFECTION

REACTIONS (9)
  - AGITATION [None]
  - COUGH [None]
  - DRUG HYPERSENSITIVITY [None]
  - INSOMNIA [None]
  - PRURITUS [None]
  - PYREXIA [None]
  - RASH GENERALISED [None]
  - RASH PAPULAR [None]
  - RASH PRURITIC [None]
